FAERS Safety Report 4845753-3 (Version None)
Quarter: 2005Q4

REPORT INFORMATION
  Report Type: 
  Country: None (occurrence: None)
  Receive Date: 20051201
  Receipt Date: 20051128
  Transmission Date: 20060501
  Serious: Yes (Hospitalization)
  Sender: FDA-Public Use
  Company Number: URSO-2005-042

PATIENT
  Age: 62 Year
  Sex: Female

DRUGS (4)
  1. DELURSAN (URSODESOXYCHOLIC ACID) [Suspect]
     Indication: BILIARY CIRRHOSIS PRIMARY
     Dosage: PO
     Route: 048
  2. INSULIN [Concomitant]
  3. BETA-CAROTENE AND BILBERRY (DIFRAREL) [Concomitant]
  4. DUPHALAC [Concomitant]

REACTIONS (2)
  - CUTANEOUS VASCULITIS [None]
  - HEPATIC ENCEPHALOPATHY [None]
